FAERS Safety Report 21249009 (Version 2)
Quarter: 2022Q3

REPORT INFORMATION
  Report Type: Spontaneous
  Country: JP (occurrence: JP)
  Receive Date: 20220824
  Receipt Date: 20220901
  Transmission Date: 20221027
  Serious: Yes (Hospitalization)
  Sender: FDA-Public Use
  Company Number: JP-PFIZER INC-PV202200048272

PATIENT
  Age: 56 Year
  Sex: Female

DRUGS (2)
  1. PACLITAXEL [Suspect]
     Active Substance: PACLITAXEL
     Indication: Ovarian cancer
     Dosage: UNK, CYCLIC (ADMINISTRATION OF 3 WEEKS FOR 6 CYCLES)
     Route: 042
     Dates: start: 20220707
  2. PACLITAXEL [Suspect]
     Active Substance: PACLITAXEL
     Dosage: UNK, CYCLIC (THE SECOND ROUND OF CHEMOTHERAPY STARTED)
     Route: 042
     Dates: start: 20220818

REACTIONS (4)
  - Intestinal obstruction [Unknown]
  - Decreased appetite [Unknown]
  - Malaise [Unknown]
  - Feeding disorder [Unknown]

NARRATIVE: CASE EVENT DATE: 20220729
